FAERS Safety Report 6907128-2 (Version None)
Quarter: 2010Q3

REPORT INFORMATION
  Report Type: 
  Country: None (occurrence: None)
  Receive Date: 20100804
  Receipt Date: 20090127
  Transmission Date: 20110219
  Serious: No
  Sender: FDA-Public Use
  Company Number: US-PFIZER INC-2008154654

PATIENT
  Sex: Female

DRUGS (1)
  1. NARDIL [Suspect]
     Indication: DEPRESSION
     Dosage: 40 MG, 1X/DAY
     Dates: start: 19890101

REACTIONS (2)
  - DEPRESSION [None]
  - DRUG ADMINISTRATION ERROR [None]
